FAERS Safety Report 9492748 (Version 2)
Quarter: 2013Q4

REPORT INFORMATION
  Report Type: Spontaneous
  Country: US (occurrence: US)
  Receive Date: 20130830
  Receipt Date: 20131017
  Transmission Date: 20140711
  Serious: Yes (Death, Other)
  Sender: FDA-Public Use
  Company Number: US-ASTRAZENECA-2013SE65572

PATIENT
  Age: 61 Year
  Sex: Female
  Weight: 96.2 kg

DRUGS (4)
  1. BRILINTA [Suspect]
     Indication: STENT PLACEMENT
     Route: 048
  2. FLUOXETINE [Concomitant]
     Route: 048
  3. BUPROPRION [Concomitant]
     Route: 048
  4. PREVACID [Concomitant]
     Route: 048

REACTIONS (3)
  - Thrombosis in device [Fatal]
  - Cardiac arrest [Fatal]
  - Brain injury [Fatal]
